FAERS Safety Report 5761142-1 (Version None)
Quarter: 2008Q2

REPORT INFORMATION
  Report Type: 
  Country: None (occurrence: None)
  Receive Date: 20080606
  Receipt Date: 20080603
  Transmission Date: 20081010
  Serious: Yes (Other)
  Sender: FDA-Public Use
  Company Number: A0730894A

PATIENT
  Age: 39 Year
  Sex: Female

DRUGS (4)
  1. BUPROPION SR [Suspect]
     Indication: DEPRESSION
     Dosage: 150MG TWICE PER DAY
     Route: 048
     Dates: start: 19980101
  2. ATENOLOL [Concomitant]
  3. LISINOPRIL [Concomitant]
  4. SYNTHROID [Concomitant]

REACTIONS (6)
  - CARDIOMYOPATHY [None]
  - FATIGUE [None]
  - IRRITABILITY [None]
  - MEDICATION ERROR [None]
  - OEDEMA PERIPHERAL [None]
  - PULMONARY OEDEMA [None]
